FAERS Safety Report 16005300 (Version 3)
Quarter: 2019Q2

REPORT INFORMATION
  Report Type: Spontaneous
  Country: US (occurrence: US)
  Receive Date: 20190226
  Receipt Date: 20190624
  Transmission Date: 20190711
  Serious: No
  Sender: FDA-Public Use
  Company Number: US-PFIZER INC-2019078391

PATIENT
  Age: 56 Year
  Sex: Female

DRUGS (1)
  1. LYRICA [Suspect]
     Active Substance: PREGABALIN
     Indication: PSORIATIC ARTHROPATHY
     Dosage: 75 MG, TWICE DAILY
     Route: 048
     Dates: start: 2015

REACTIONS (6)
  - Product use in unapproved indication [Unknown]
  - Vomiting [Recovered/Resolved]
  - Bronchitis [Recovered/Resolved]
  - Movement disorder [Unknown]
  - Off label use [Unknown]
  - Malaise [Recovered/Resolved]

NARRATIVE: CASE EVENT DATE: 2015
